FAERS Safety Report 9332074 (Version 2)
Quarter: 2013Q4

REPORT INFORMATION
  Report Type: Report from Study
  Country: NL (occurrence: NL)
  Receive Date: 20130605
  Receipt Date: 20131223
  Transmission Date: 20140711
  Serious: Yes (Death)
  Sender: FDA-Public Use
  Company Number: NL-TEVA-409407ISR

PATIENT
  Age: 52 Year
  Sex: Female

DRUGS (5)
  1. MYOCET [Suspect]
  2. PACLITAXEL [Suspect]
     Indication: BREAST CANCER METASTATIC
     Dosage: 174 MILLIGRAM DAILY;
     Route: 042
     Dates: start: 20121102, end: 20121114
  3. AVASTIN [Suspect]
     Indication: BREAST CANCER METASTATIC
     Dosage: 825 MILLIGRAM DAILY;
     Route: 042
     Dates: start: 20121102, end: 20121114
  4. TRAMADOL [Concomitant]
     Dosage: 50 MILLIGRAM DAILY;
     Dates: start: 20121115
  5. OMEPRAZOL [Concomitant]
     Dosage: 20 MILLIGRAM DAILY;
     Dates: start: 20121101

REACTIONS (1)
  - Pulmonary embolism [Fatal]
